FAERS Safety Report 19707136 (Version 1)
Quarter: 2021Q3

REPORT INFORMATION
  Report Type: Spontaneous
  Country: US (occurrence: US)
  Receive Date: 20210817
  Receipt Date: 20210817
  Transmission Date: 20211014
  Serious: No
  Sender: FDA-Public Use
  Company Number: None

PATIENT
  Age: 48 Year
  Sex: Female
  Weight: 63.9 kg

DRUGS (2)
  1. CLARITIN?D NOS [Concomitant]
     Active Substance: LORATADINE\PSEUDOEPHEDRINE SULFATE
  2. COMBIPATCH (ESTRADIOL/NORETHINDRONE ACETATE TRANSDERMAL SYSTEM) [Suspect]
     Active Substance: ESTRADIOL\NORETHINDRONE ACETATE
     Indication: MENOPAUSE
     Dosage: ?          QUANTITY:1 PATCH(ES);OTHER FREQUENCY:2 X WEEK;?
     Route: 062
     Dates: start: 20201031, end: 20210721

REACTIONS (4)
  - Application site pruritus [None]
  - Application site erythema [None]
  - Application site rash [None]
  - Application site irritation [None]

NARRATIVE: CASE EVENT DATE: 20210721
